FAERS Safety Report 5627612-1 (Version None)
Quarter: 2008Q1

REPORT INFORMATION
  Report Type: 
  Country: None (occurrence: None)
  Receive Date: 20080214
  Receipt Date: 20080214
  Transmission Date: 20080703
  Serious: Yes (Hospitalization)
  Sender: FDA-Public Use
  Company Number: None

PATIENT
  Age: 56 Year
  Sex: Male
  Weight: 88.905 kg

DRUGS (1)
  1. SCOPOLAMINE [Suspect]
     Indication: NAUSEA
     Dosage: 1 PATCH EVERY 3 DAYS
     Dates: start: 20080209, end: 20080213

REACTIONS (2)
  - DISORIENTATION [None]
  - HALLUCINATION [None]
